FAERS Safety Report 18729979 (Version 1)
Quarter: 2021Q1

REPORT INFORMATION
  Report Type: Spontaneous
  Country: US (occurrence: US)
  Receive Date: 20210112
  Receipt Date: 20210112
  Transmission Date: 20210419
  Serious: No
  Sender: FDA-Public Use
  Company Number: US-GLAXOSMITHKLINE-US2021000928

PATIENT
  Age: 57 Year
  Sex: Female

DRUGS (1)
  1. ALLI [Suspect]
     Active Substance: ORLISTAT
     Indication: WEIGHT LOSS DIET
     Dosage: UNK
     Dates: start: 20201223, end: 20210101

REACTIONS (7)
  - Adverse drug reaction [Recovering/Resolving]
  - Erythema [Unknown]
  - Pruritus [Recovered/Resolved]
  - Bone pain [Recovering/Resolving]
  - Urticaria [Recovering/Resolving]
  - Rash [Not Recovered/Not Resolved]
  - Swelling [Not Recovered/Not Resolved]
